FAERS Safety Report 6237195-3 (Version None)
Quarter: 2009Q2

REPORT INFORMATION
  Report Type: 
  Country: None (occurrence: None)
  Receive Date: 20090619
  Receipt Date: 20090615
  Transmission Date: 20091009
  Serious: Yes (Other)
  Sender: FDA-Public Use
  Company Number: FR-B.I. PHARMACEUTICALS,INC./RIDGEFIELD-2009-DE-04318GD

PATIENT

DRUGS (4)
  1. NEVIRAPINE [Suspect]
     Indication: HIV INFECTION
  2. STAVUDINE [Suspect]
     Indication: HIV INFECTION
  3. 3TC [Suspect]
     Indication: HIV INFECTION
  4. NELFINAVIR [Suspect]
     Indication: HIV INFECTION

REACTIONS (1)
  - PELVIC FRACTURE [None]
